FAERS Safety Report 12069444 (Version 1)
Quarter: 2016Q1

REPORT INFORMATION
  Report Type: Report from Study
  Country: KH (occurrence: CA)
  Receive Date: 20160211
  Receipt Date: 20160211
  Transmission Date: 20160526
  Serious: Yes (Hospitalization)
  Sender: FDA-Public Use
  Company Number: CA-BIOGEN-2015BI156810

PATIENT
  Age: 46 Year
  Sex: Female

DRUGS (10)
  1. TYSABRI [Suspect]
     Active Substance: NATALIZUMAB
     Indication: MULTIPLE SCLEROSIS
     Route: 042
     Dates: start: 20140807, end: 20150831
  2. CIPROFLOXACIN. [Concomitant]
     Active Substance: CIPROFLOXACIN
     Route: 048
  3. GABAPENTIN. [Concomitant]
     Active Substance: GABAPENTIN
     Route: 048
  4. CYANOCOBALAMIN. [Concomitant]
     Active Substance: CYANOCOBALAMIN
     Route: 060
  5. VITAMIN D3 [Concomitant]
     Active Substance: CHOLECALCIFEROL
     Route: 048
  6. BACLOFEN. [Concomitant]
     Active Substance: BACLOFEN
     Route: 048
  7. CALCIUM [Concomitant]
     Active Substance: CALCIUM
     Route: 065
  8. SERTRALINE [Concomitant]
     Active Substance: SERTRALINE HYDROCHLORIDE
     Route: 048
  9. PROGESTERONE. [Concomitant]
     Active Substance: PROGESTERONE
     Route: 048
  10. TIZANIDINE. [Concomitant]
     Active Substance: TIZANIDINE
     Route: 048

REACTIONS (1)
  - Stoma site ulcer [Recovered/Resolved with Sequelae]

NARRATIVE: CASE EVENT DATE: 20151117
